FAERS Safety Report 16168971 (Version 1)
Quarter: 2019Q2

REPORT INFORMATION
  Report Type: Spontaneous
  Country: US (occurrence: US)
  Receive Date: 20190408
  Receipt Date: 20190408
  Transmission Date: 20190711
  Serious: No
  Sender: FDA-Public Use
  Company Number: US-MYLANLABS-2019M1030643

PATIENT

DRUGS (1)
  1. EPIPEN [Suspect]
     Active Substance: EPINEPHRINE
     Indication: ALLERGY TO ARTHROPOD STING
     Dosage: 3 MILLIGRAM
     Route: 030
     Dates: start: 20190329, end: 20190329

REACTIONS (4)
  - Expired product administered [Recovered/Resolved]
  - Thirst [Recovered/Resolved]
  - Dizziness [Recovered/Resolved]
  - Accidental exposure to product [Recovered/Resolved]

NARRATIVE: CASE EVENT DATE: 20190329
